FAERS Safety Report 9034359 (Version 2)
Quarter: 2013Q1

REPORT INFORMATION
  Report Type: Spontaneous
  Country: US (occurrence: None)
  Receive Date: 20130111
  Receipt Date: 20130212
  Transmission Date: 20140127
  Serious: Yes (Other)
  Sender: FDA-Public Use
  Company Number: AUR-APL-2013-00085

PATIENT
  Age: 38 Year
  Sex: Female

DRUGS (8)
  1. LAMIVUDINE [Suspect]
     Indication: HIV INFECTION
     Dates: end: 2006
  2. ZIDOVUDINE [Suspect]
     Indication: HIV INFECTION
     Dates: end: 2006
  3. VALACYCLOVIR [Suspect]
     Indication: PROPHYLAXIS
     Dosage: 1000 MG (500 MG, 2 IN 1 D)
  4. ATAZANAVIR [Suspect]
     Indication: HIV INFECTION
     Dates: start: 2006
  5. EMTRICITABINE [Suspect]
     Indication: HIV INFECTION
  6. TENOFOVIR [Suspect]
     Indication: HIV INFECTION
  7. RITONAVIR [Suspect]
     Indication: HIV INFECTION
  8. ABACAVIR [Suspect]
     Indication: HIV INFECTION

REACTIONS (5)
  - Nausea [None]
  - Dermatitis [None]
  - Lichen planus [None]
  - Syphilis [None]
  - Neoplasm malignant [None]
